FAERS Safety Report 4459746-1 (Version None)
Quarter: 2004Q3

REPORT INFORMATION
  Report Type: 
  Country: None (occurrence: None)
  Receive Date: 20040928
  Receipt Date: 20030902
  Transmission Date: 20050211
  Serious: Yes (Other)
  Sender: FDA-Public Use
  Company Number: US-BRISTOL-MYERS SQUIBB COMPANY-12371779

PATIENT

DRUGS (1)
  1. KENALOG-40 [Suspect]
     Dosage: DOSE VALUE:  ^VERY LARGE^
     Route: 014

REACTIONS (1)
  - OVERDOSE [None]
